FAERS Safety Report 5793929-3 (Version None)
Quarter: 2008Q2

REPORT INFORMATION
  Report Type: 
  Country: None (occurrence: None)
  Receive Date: 20080627
  Receipt Date: 20080613
  Transmission Date: 20081010
  Serious: Yes (Other)
  Sender: FDA-Public Use
  Company Number: FR-GENENTECH-262806

PATIENT
  Sex: Female

DRUGS (2)
  1. XOLAIR [Suspect]
     Indication: ASTHMA
     Dosage: 225 MG, Q2W
     Dates: start: 20070501, end: 20080101
  2. XOLAIR [Suspect]
     Dosage: 150 MG, Q2W
     Dates: start: 20080101, end: 20080201

REACTIONS (3)
  - ASTHMA [None]
  - INFLUENZA [None]
  - PHARYNGITIS [None]
